FAERS Safety Report 7815814-5 (Version None)
Quarter: 2011Q4

REPORT INFORMATION
  Report Type: 
  Country: None (occurrence: None)
  Receive Date: 20111014
  Receipt Date: 20110930
  Transmission Date: 20120403
  Serious: Yes (Other)
  Sender: FDA-Public Use
  Company Number: US-BRISTOL-MYERS SQUIBB COMPANY-15701444

PATIENT
  Age: 55 Year
  Sex: Female

DRUGS (2)
  1. RECOTHROM [Suspect]
     Indication: OPERATIVE HAEMORRHAGE
  2. SURGIFOAM [Suspect]
     Indication: OPERATIVE HAEMORRHAGE

REACTIONS (2)
  - VENOUS OCCLUSION [None]
  - MEDICATION ERROR [None]
